FAERS Safety Report 4991134-1 (Version None)
Quarter: 2006Q1

REPORT INFORMATION
  Report Type: 
  Country: None (occurrence: None)
  Receive Date: 20060314
  Receipt Date: 20051207
  Transmission Date: 20060701
  Serious: No
  Sender: FDA-Public Use
  Company Number: 2005-02521

PATIENT
  Age: 64 Year
  Sex: Female
  Weight: 78.9 kg

DRUGS (9)
  1. VELCADE [Suspect]
     Indication: MULTIPLE MYELOMA
     Dosage: 1.30  MG/M2, IV BOLUS
     Route: 040
     Dates: start: 20051122, end: 20051125
  2. DECADRON SRC [Concomitant]
  3. MULTIVITAMINS (ERGOCALCIFEROL, ASCORBIC ACID, PANTHENOL, NICOTINAMIDE, [Concomitant]
  4. GLUCOSAMINE (GLUCOSAMINE) [Concomitant]
  5. CALCIUM (CALCIUM) [Concomitant]
  6. ACETAMINOPHEN [Concomitant]
  7. OMEGA 3 (FISH OIL) [Concomitant]
  8. VITAMIN B COMPLEX (PYRIDOXINE HYDROCHLORIDE, RIBOFLAVIN, CALCIUM PANTO [Concomitant]
  9. MEDROL ACETATE [Concomitant]

REACTIONS (2)
  - FLUSHING [None]
  - RASH [None]
